FAERS Safety Report 8380868-7 (Version None)
Quarter: 2012Q2

REPORT INFORMATION
  Report Type: 
  Country: None (occurrence: None)
  Receive Date: 20120523
  Receipt Date: 20120518
  Transmission Date: 20120825
  Serious: Yes (Other)
  Sender: FDA-Public Use
  Company Number: US-MERCK-1203USA04006

PATIENT
  Age: 73 Year
  Sex: Female

DRUGS (11)
  1. LISINOPRIL [Concomitant]
     Route: 048
  2. NORVASC [Concomitant]
     Route: 065
  3. FOSAMAX PLUS D [Suspect]
     Indication: BONE DISORDER
     Route: 048
     Dates: start: 20020301, end: 20120301
  4. EVISTA [Concomitant]
     Route: 065
  5. PROZAC [Concomitant]
     Route: 065
  6. LYRICA [Concomitant]
     Route: 065
  7. PERCOCET [Concomitant]
     Route: 065
  8. VITAMIN D (UNSPECIFIED) [Concomitant]
     Route: 065
  9. ALLOPURINOL [Concomitant]
     Route: 065
  10. CYANOCOBALAMIN [Concomitant]
     Route: 065
  11. VITAMIN E [Concomitant]
     Route: 065

REACTIONS (1)
  - SPINAL FRACTURE [None]
